FAERS Safety Report 4785337-9 (Version None)
Quarter: 2005Q3

REPORT INFORMATION
  Report Type: 
  Country: None (occurrence: None)
  Receive Date: 20050914
  Receipt Date: 20050427
  Transmission Date: 20060218
  Serious: Yes (Life-Threatening, Hospitalization)
  Sender: FDA-Public Use
  Company Number: 163-20785-04050587

PATIENT
  Age: 56 Year
  Sex: Male

DRUGS (37)
  1. THALOMID [Suspect]
     Indication: MULTIPLE MYELOMA
     Dosage: 200 MG, QD, ORAL; SEE IMAGE
     Route: 048
     Dates: start: 20040425, end: 20040428
  2. THALOMID [Suspect]
     Indication: MULTIPLE MYELOMA
     Dosage: 200 MG, QD, ORAL; SEE IMAGE
     Route: 048
     Dates: start: 20050118, end: 20050121
  3. THALOMID [Suspect]
     Indication: MULTIPLE MYELOMA
     Dosage: 200 MG, QD, ORAL; SEE IMAGE
     Route: 048
     Dates: start: 20040528
  4. BORTEZOMIB (BORTEZOMIB) [Suspect]
     Indication: MULTIPLE MYELOMA
     Dosage: 1.9 MG, INTRAVENOUS; SEE IMAGE
     Route: 042
     Dates: start: 20050118, end: 20050118
  5. BORTEZOMIB (BORTEZOMIB) [Suspect]
     Indication: MULTIPLE MYELOMA
     Dosage: 1.9 MG, INTRAVENOUS; SEE IMAGE
     Route: 042
     Dates: start: 20050121, end: 20050121
  6. BORTEZOMIB (BORTEZOMIB) [Suspect]
     Indication: MULTIPLE MYELOMA
     Dosage: 1.9 MG, INTRAVENOUS; SEE IMAGE
     Route: 042
     Dates: start: 20050125, end: 20050125
  7. BORTEZOMIB (BORTEZOMIB) [Suspect]
     Indication: MULTIPLE MYELOMA
     Dosage: 1.9 MG, INTRAVENOUS; SEE IMAGE
     Route: 042
     Dates: start: 20050128, end: 20050128
  8. BORTEZOMIB (BORTEZOMIB) [Suspect]
     Indication: MULTIPLE MYELOMA
     Dosage: 1.9 MG, INTRAVENOUS; SEE IMAGE
     Route: 042
     Dates: start: 20040421
  9. BORTEZOMIB (BORTEZOMIB) [Suspect]
     Indication: MULTIPLE MYELOMA
     Dosage: 1.9 MG, INTRAVENOUS; SEE IMAGE
     Route: 042
     Dates: start: 20040424
  10. BORTEZOMIB (BORTEZOMIB) [Suspect]
     Indication: MULTIPLE MYELOMA
     Dosage: 1.9 MG, INTRAVENOUS; SEE IMAGE
     Route: 042
     Dates: start: 20040428
  11. BORTEZOMIB (BORTEZOMIB) [Suspect]
     Indication: MULTIPLE MYELOMA
     Dosage: 1.9 MG, INTRAVENOUS; SEE IMAGE
     Route: 042
     Dates: start: 20040501
  12. BORTEZOMIB (BORTEZOMIB) [Suspect]
     Indication: MULTIPLE MYELOMA
     Dosage: 1.9 MG, INTRAVENOUS; SEE IMAGE
     Route: 042
     Dates: start: 20040528
  13. DEXAMETHASONE [Suspect]
     Indication: MULTIPLE MYELOMA
     Dosage: 40 MG, DAILY, ORAL; SEE IMAGE
     Route: 048
     Dates: start: 20040424, end: 20040427
  14. DEXAMETHASONE [Suspect]
     Indication: MULTIPLE MYELOMA
     Dosage: 40 MG, DAILY, ORAL; SEE IMAGE
     Route: 048
     Dates: start: 20050118, end: 20050121
  15. DEXAMETHASONE [Suspect]
     Indication: MULTIPLE MYELOMA
     Dosage: 40 MG, DAILY, ORAL; SEE IMAGE
     Route: 048
     Dates: start: 20040528
  16. CISPLATIN [Suspect]
     Indication: MULTIPLE MYELOMA
     Dosage: 19 MG, DAILY, INTRAVENOUS; SEE IMAGE
     Route: 042
     Dates: start: 20040424, end: 20040427
  17. CISPLATIN [Suspect]
     Indication: MULTIPLE MYELOMA
     Dosage: 19 MG, DAILY, INTRAVENOUS; SEE IMAGE
     Route: 042
     Dates: start: 20050118, end: 20050121
  18. CISPLATIN [Suspect]
     Indication: MULTIPLE MYELOMA
     Dosage: 19 MG, DAILY, INTRAVENOUS; SEE IMAGE
     Route: 042
     Dates: start: 20040528
  19. ADRIAMYCIN PFS [Suspect]
     Indication: MULTIPLE MYELOMA
     Dosage: 19 MG, DAILY, INTRAVENOUS; SEE IMAGE
     Route: 042
     Dates: start: 20040424, end: 20040427
  20. ADRIAMYCIN PFS [Suspect]
     Indication: MULTIPLE MYELOMA
     Dosage: 19 MG, DAILY, INTRAVENOUS; SEE IMAGE
     Route: 042
     Dates: start: 20050118, end: 20050121
  21. ADRIAMYCIN PFS [Suspect]
     Indication: MULTIPLE MYELOMA
     Dosage: 19 MG, DAILY, INTRAVENOUS; SEE IMAGE
     Route: 042
     Dates: start: 20040528
  22. CYCLOPHOSPHAMIDE [Suspect]
     Indication: MULTIPLE MYELOMA
     Dosage: 768 MG, DAILY, INTRAVENOUS; SEE IMAGE
     Route: 042
     Dates: start: 20040424, end: 20040427
  23. CYCLOPHOSPHAMIDE [Suspect]
     Indication: MULTIPLE MYELOMA
     Dosage: 768 MG, DAILY, INTRAVENOUS; SEE IMAGE
     Route: 042
     Dates: start: 20050118, end: 20050121
  24. CYCLOPHOSPHAMIDE [Suspect]
     Indication: MULTIPLE MYELOMA
     Dosage: 768 MG, DAILY, INTRAVENOUS; SEE IMAGE
     Route: 042
     Dates: start: 20040528
  25. ETOPOSIDE [Suspect]
     Indication: MULTIPLE MYELOMA
     Dosage: 77 MG, DAILY, INTRAVENOUS; SEE IMAGE
     Route: 042
     Dates: start: 20040424, end: 20040427
  26. ETOPOSIDE [Suspect]
     Indication: MULTIPLE MYELOMA
     Dosage: 77 MG, DAILY, INTRAVENOUS; SEE IMAGE
     Route: 042
     Dates: start: 20050118, end: 20050121
  27. ETOPOSIDE [Suspect]
     Indication: MULTIPLE MYELOMA
     Dosage: 77 MG, DAILY, INTRAVENOUS; SEE IMAGE
     Route: 042
     Dates: start: 20040528
  28. MELPHALAN (MELPHALAN) [Suspect]
     Indication: MULTIPLE MYELOMA
     Dosage: DAILY; SEE IMAGE
     Dates: start: 20040713, end: 20040713
  29. MELPHALAN (MELPHALAN) [Suspect]
     Indication: MULTIPLE MYELOMA
     Dosage: DAILY; SEE IMAGE
     Dates: start: 20041004, end: 20041004
  30. LEVAQUIN [Concomitant]
  31. DIFLUCAN [Concomitant]
  32. ACYCLOVIR [Concomitant]
  33. AUGMENTIN '125' [Concomitant]
  34. PROTONIX [Concomitant]
  35. EFFEXOR [Concomitant]
  36. ATIVAN [Concomitant]
  37. AMBIEN [Concomitant]

REACTIONS (8)
  - ASTHENIA [None]
  - CENTRAL LINE INFECTION [None]
  - NAUSEA [None]
  - PANCYTOPENIA [None]
  - PNEUMONIA [None]
  - PYREXIA [None]
  - RENAL IMPAIRMENT [None]
  - THROMBOCYTOPENIA [None]
